FAERS Safety Report 5967995-6 (Version None)
Quarter: 2008Q4

REPORT INFORMATION
  Report Type: 
  Country: None (occurrence: None)
  Receive Date: 20081126
  Receipt Date: 20081124
  Transmission Date: 20090506
  Serious: Yes (Other)
  Sender: FDA-Public Use
  Company Number: LB-BRISTOL-MYERS SQUIBB COMPANY-14418933

PATIENT
  Sex: Male

DRUGS (1)
  1. HYDROXYCARBAMIDE [Suspect]

REACTIONS (1)
  - INTRACRANIAL VENOUS SINUS THROMBOSIS [None]
